FAERS Safety Report 9272845 (Version 1)
Quarter: 2013Q2

REPORT INFORMATION
  Report Type: Spontaneous
  Country: US (occurrence: US)
  Receive Date: 20130506
  Receipt Date: 20130506
  Transmission Date: 20140414
  Serious: Yes (Other)
  Sender: FDA-Public Use
  Company Number: US-BRISTOL-MYERS SQUIBB COMPANY-18833376

PATIENT
  Age: 68 Year
  Sex: Male

DRUGS (2)
  1. COUMADIN [Suspect]
     Indication: THROMBOSIS
     Dosage: 1995-UNK DATE?2010
     Dates: start: 1995
  2. ASPIRIN [Concomitant]

REACTIONS (2)
  - Thrombocytopenia [Unknown]
  - Blood urine present [Unknown]
